FAERS Safety Report 16465226 (Version 2)
Quarter: 2019Q3

REPORT INFORMATION
  Report Type: Spontaneous
  Country: CH (occurrence: CH)
  Receive Date: 20190621
  Receipt Date: 20190702
  Transmission Date: 20191004
  Serious: Yes (Hospitalization, Other)
  Sender: FDA-Public Use
  Company Number: CH-009507513-1906CHE007445

PATIENT
  Age: 69 Year
  Sex: Male

DRUGS (1)
  1. KEYTRUDA [Suspect]
     Active Substance: PEMBROLIZUMAB
     Indication: MALIGNANT MELANOMA
     Dosage: DOSAGE UNKNOWN. TWO TOTAL ADMINISTRATIONS; IN TOTAL
     Route: 041
     Dates: start: 20190417, end: 20190508

REACTIONS (20)
  - Hypokinesia [Unknown]
  - Muscle disorder [Unknown]
  - Muscle disorder [Unknown]
  - Functional gastrointestinal disorder [Unknown]
  - Thyroid disorder [Unknown]
  - Malaise [Unknown]
  - Diabetes mellitus inadequate control [Recovering/Resolving]
  - Functional gastrointestinal disorder [Unknown]
  - Frequent bowel movements [Unknown]
  - Liver disorder [Unknown]
  - Pain in extremity [Unknown]
  - Diabetes mellitus [Unknown]
  - Condition aggravated [Recovering/Resolving]
  - Diabetic ketoacidosis [Not Recovered/Not Resolved]
  - Rhabdomyolysis [Recovered/Resolved]
  - Condition aggravated [Unknown]
  - Cardiac disorder [Unknown]
  - Renal disorder [Unknown]
  - Blood glucose abnormal [Recovering/Resolving]
  - Dysphonia [Unknown]

NARRATIVE: CASE EVENT DATE: 2019
